FAERS Safety Report 4546307-9 (Version None)
Quarter: 2005Q1

REPORT INFORMATION
  Report Type: 
  Country: None (occurrence: None)
  Receive Date: 20050106
  Receipt Date: 20041027
  Transmission Date: 20050727
  Serious: No
  Sender: FDA-Public Use
  Company Number: PHRM2004FR03238

PATIENT
  Age: 61 Year
  Sex: Male
  Weight: 90 kg

DRUGS (2)
  1. XALATAN [Concomitant]
     Indication: GLAUCOMA
     Dosage: 1 DF, QD
     Dates: start: 19990101
  2. LESCOL [Suspect]
     Indication: HYPERCHOLESTEROLAEMIA
     Dosage: 40 MG/DAY
     Route: 048
     Dates: start: 19980501, end: 20041012

REACTIONS (1)
  - ECZEMA [None]
